FAERS Safety Report 6394829-0 (Version None)
Quarter: 2009Q4

REPORT INFORMATION
  Report Type: 
  Country: None (occurrence: None)
  Receive Date: 20091009
  Receipt Date: 20090908
  Transmission Date: 20100525
  Serious: No
  Sender: FDA-Public Use
  Company Number: US-BAYER-200932855NA

PATIENT
  Age: 33 Year
  Sex: Female
  Weight: 55 kg

DRUGS (2)
  1. MIRENA [Suspect]
     Indication: CONTRACEPTION
     Route: 015
     Dates: start: 20090807, end: 20090908
  2. MIRENA [Suspect]
     Route: 015
     Dates: start: 20090908

REACTIONS (3)
  - DEVICE EXPULSION [None]
  - PAIN [None]
  - VAGINAL HAEMORRHAGE [None]
